FAERS Safety Report 5076184-1 (Version None)
Quarter: 2006Q3

REPORT INFORMATION
  Report Type: 
  Country: None (occurrence: None)
  Receive Date: 20060807
  Receipt Date: 20060804
  Transmission Date: 20061208
  Serious: Yes (Other)
  Sender: FDA-Public Use
  Company Number: 007555

PATIENT
  Age: 20 Year
  Sex: Female

DRUGS (2)
  1. CLARAVIS [Suspect]
     Dosage: SEE IMAGE, ORAL
     Route: 048
     Dates: start: 20050816, end: 20060301
  2. CLARAVIS [Suspect]
     Dosage: SEE IMAGE, ORAL
     Route: 048
     Dates: start: 20060301, end: 20060409

REACTIONS (3)
  - ABORTION INDUCED [None]
  - DRUG EXPOSURE DURING PREGNANCY [None]
  - UNINTENDED PREGNANCY [None]
